FAERS Safety Report 4933972-7 (Version None)
Quarter: 2006Q1

REPORT INFORMATION
  Report Type: 
  Country: None (occurrence: None)
  Receive Date: 20060302
  Receipt Date: 20060223
  Transmission Date: 20060701
  Serious: Yes (Other)
  Sender: FDA-Public Use
  Company Number: 200610248BYL

PATIENT
  Age: 85 Year
  Sex: Female
  Weight: 41 kg

DRUGS (8)
  1. AVELOX [Suspect]
     Indication: BRONCHITIS
     Dosage: 400 MG, QD, ORAL
     Route: 048
     Dates: start: 20060206, end: 20060208
  2. MAOBUSHISAISHINTOU [Concomitant]
  3. GASTER [Concomitant]
  4. LIPITOR [Concomitant]
  5. TOLEDOMIN [Concomitant]
  6. NEO DOPASTON [Concomitant]
  7. IBURONOL [Concomitant]
  8. ARICEPT [Concomitant]

REACTIONS (1)
  - RHABDOMYOLYSIS [None]
